FAERS Safety Report 9008216 (Version 2)
Quarter: 2013Q1

REPORT INFORMATION
  Report Type: Spontaneous
  Country: BD (occurrence: BD)
  Receive Date: 20130111
  Receipt Date: 20130319
  Transmission Date: 20140127
  Serious: Yes (Death, Other)
  Sender: FDA-Public Use
  Company Number: PHHY2013BD002382

PATIENT
  Age: 50 Year
  Sex: Male

DRUGS (1)
  1. SEBIVO [Suspect]
     Indication: HEPATITIS B
     Dosage: DAILY
     Route: 048
     Dates: start: 20120208

REACTIONS (4)
  - Hepatic cirrhosis [Fatal]
  - Hepatic function abnormal [Fatal]
  - Diabetes mellitus [Unknown]
  - Hepatitis B [Unknown]
